FAERS Safety Report 8459153-0 (Version None)
Quarter: 2012Q2

REPORT INFORMATION
  Report Type: 
  Country: None (occurrence: None)
  Receive Date: 20120618
  Receipt Date: 20120614
  Transmission Date: 20120825
  Serious: Yes (Hospitalization, Other)
  Sender: FDA-Public Use
  Company Number: ADR-2011-11379

PATIENT
  Sex: Male

DRUGS (3)
  1. LIORESAL [Suspect]
     Indication: CEREBRAL PALSY
     Dosage: SEE IMAGE
     Route: 037
  2. LIORESAL [Suspect]
     Indication: MUSCLE SPASTICITY
     Dosage: SEE IMAGE
     Route: 037
  3. SEE IMAGE [Concomitant]

REACTIONS (17)
  - RASH [None]
  - PRODUCT QUALITY ISSUE [None]
  - DEVICE MALFUNCTION [None]
  - PYREXIA [None]
  - HALLUCINATION, VISUAL [None]
  - INCORRECT DOSE ADMINISTERED BY DEVICE [None]
  - FEEDING DISORDER [None]
  - DYSPHAGIA [None]
  - BLOOD PRESSURE INCREASED [None]
  - MUSCLE RIGIDITY [None]
  - COMA [None]
  - DYSARTHRIA [None]
  - SOMNOLENCE [None]
  - SPEECH DISORDER [None]
  - DYSSTASIA [None]
  - ASTHENIA [None]
  - FEELING DRUNK [None]
